FAERS Safety Report 11313354 (Version 4)
Quarter: 2017Q2

REPORT INFORMATION
  Report Type: Report from Study
  Country: DE (occurrence: DE)
  Receive Date: 20150727
  Receipt Date: 20170401
  Transmission Date: 20170829
  Serious: Yes (Hospitalization)
  Sender: FDA-Public Use
  Company Number: GXKR2013DE002867

PATIENT
  Age: 45 Year
  Sex: Male

DRUGS (4)
  1. ZARZIO [Suspect]
     Active Substance: FILGRASTIM
     Indication: HAEMATOPOIETIC STEM CELL MOBILISATION
     Dosage: 78 MIU, QD
     Route: 058
     Dates: start: 20130824, end: 20130826
  2. ZARZIO [Suspect]
     Active Substance: FILGRASTIM
     Dosage: 30 MIU, QD
     Route: 058
     Dates: start: 20130824, end: 20130826
  3. IBUPROFEN. [Concomitant]
     Active Substance: IBUPROFEN
  4. PARACETAMOL [Concomitant]
     Active Substance: ACETAMINOPHEN

REACTIONS (7)
  - Bone pain [Recovered/Resolved]
  - Presyncope [Recovered/Resolved]
  - Back pain [Recovered/Resolved]
  - Bone pain [Recovered/Resolved]
  - Bone pain [Recovered/Resolved]
  - Viral upper respiratory tract infection [Recovered/Resolved]
  - Vertigo [Recovered/Resolved]

NARRATIVE: CASE EVENT DATE: 20130824
